FAERS Safety Report 14765133 (Version 3)
Quarter: 2019Q1

REPORT INFORMATION
  Report Type: Spontaneous
  Country: JP (occurrence: JP)
  Receive Date: 20180416
  Receipt Date: 20190219
  Transmission Date: 20190417
  Serious: Yes (Death, Hospitalization)
  Sender: FDA-Public Use
  Company Number: JP-EISAI MEDICAL RESEARCH-EC-2018-037827

PATIENT
  Age: 75 Year
  Sex: Male
  Weight: 57 kg

DRUGS (2)
  1. WARFARIN [Concomitant]
     Active Substance: WARFARIN
     Indication: PORTAL VEIN THROMBOSIS
     Dosage: UNKNOWN
     Route: 048
     Dates: start: 201708
  2. LENVIMA [Suspect]
     Active Substance: LENVATINIB
     Indication: HEPATOCELLULAR CARCINOMA
     Route: 048
     Dates: start: 20180328, end: 20180401

REACTIONS (7)
  - Hepatic failure [Fatal]
  - Aspartate aminotransferase increased [Recovering/Resolving]
  - Varices oesophageal [Recovered/Resolved]
  - Hypertension [Recovered/Resolved]
  - Alanine aminotransferase increased [Recovering/Resolving]
  - Malaise [Unknown]
  - Hypothyroidism [Recovering/Resolving]

NARRATIVE: CASE EVENT DATE: 20180329
